FAERS Safety Report 4770662-8 (Version None)
Quarter: 2005Q3

REPORT INFORMATION
  Report Type: 
  Country: None (occurrence: None)
  Receive Date: 20050915
  Receipt Date: 20050907
  Transmission Date: 20060218
  Serious: Yes (Death, Hospitalization)
  Sender: FDA-Public Use
  Company Number: US-JNJFOC-20050902081

PATIENT
  Age: 82 Year
  Sex: Female

DRUGS (7)
  1. ACETAMINOPHEN [Suspect]
     Route: 048
  2. ACETAMINOPHEN [Suspect]
     Indication: DRUG USE FOR UNKNOWN INDICATION
     Route: 048
  3. VALSARTAN [Concomitant]
  4. NIFEDIPINE [Concomitant]
  5. CLONIDINE [Concomitant]
  6. FOLIC ACID [Concomitant]
  7. PAROXETINE HCL [Concomitant]

REACTIONS (3)
  - DRUG TOXICITY [None]
  - MENTAL STATUS CHANGES [None]
  - MULTI-ORGAN FAILURE [None]
